FAERS Safety Report 11539323 (Version 1)
Quarter: 2015Q3

REPORT INFORMATION
  Report Type: Spontaneous
  Country: US (occurrence: None)
  Receive Date: 20150922
  Receipt Date: 20150922
  Transmission Date: 20151125
  Serious: No
  Sender: FDA-Public Use
  Company Number: None

PATIENT
  Age: 23 Year
  Sex: Female
  Weight: 70.31 kg

DRUGS (1)
  1. MIRENA [Suspect]
     Active Substance: LEVONORGESTREL

REACTIONS (6)
  - Pruritus [None]
  - Fall [None]
  - Insomnia [None]
  - Urticaria [None]
  - Paraesthesia [None]
  - Abasia [None]

NARRATIVE: CASE EVENT DATE: 20150101
